FAERS Safety Report 6877812-8 (Version None)
Quarter: 2010Q3

REPORT INFORMATION
  Report Type: 
  Country: None (occurrence: None)
  Receive Date: 20100727
  Receipt Date: 20100511
  Transmission Date: 20110219
  Serious: No
  Sender: FDA-Public Use
  Company Number: US-ABBOTT-10P-163-0644342-00

PATIENT
  Sex: Female

DRUGS (2)
  1. SYNTHROID [Suspect]
     Indication: PRODUCT USED FOR UNKNOWN INDICATION
     Route: 048
     Dates: start: 20090101
  2. SYNTHROID [Suspect]
     Dates: end: 20090101

REACTIONS (3)
  - BLOOD THYROID STIMULATING HORMONE ABNORMAL [None]
  - CARDIAC FLUTTER [None]
  - PALPITATIONS [None]
